FAERS Safety Report 25701426 (Version 1)
Quarter: 2025Q3

REPORT INFORMATION
  Report Type: Report from Study
  Country: US (occurrence: US)
  Receive Date: 20250819
  Receipt Date: 20250819
  Transmission Date: 20251021
  Serious: Yes (Death)
  Sender: PFIZER
  Company Number: US-PFIZER INC-202500165299

PATIENT
  Age: 37 Year
  Sex: Male

DRUGS (13)
  1. LORBRENA [Suspect]
     Active Substance: LORLATINIB
     Dosage: TAKE 1 TABLET (100 MG) BY MOUTH ONCE DAILY
     Route: 048
     Dates: start: 20241203, end: 20250815
  2. ADAPALENE [Concomitant]
     Active Substance: ADAPALENE
  3. ADVIL [Concomitant]
     Active Substance: IBUPROFEN
  4. ALECENSA [Concomitant]
     Active Substance: ALECTINIB HYDROCHLORIDE
  5. ANDROGEL [Concomitant]
     Active Substance: TESTOSTERONE
  6. CALCIUM [Concomitant]
     Active Substance: CALCIUM
  7. CETIRIZINE [Concomitant]
     Active Substance: CETIRIZINE HYDROCHLORIDE
  8. HYDROCODONE BITARTRATE AND ACETAMINOPHEN [Concomitant]
     Active Substance: ACETAMINOPHEN\HYDROCODONE BITARTRATE
  9. LEVOTHYROXINE [Concomitant]
     Active Substance: LEVOTHYROXINE
  10. ONDANSETRON [Concomitant]
     Active Substance: ONDANSETRON
  11. TESTOSTERONE [Concomitant]
     Active Substance: TESTOSTERONE
  12. TYLENOL [Concomitant]
     Active Substance: ACETAMINOPHEN
  13. ZOLEDRONIC [Concomitant]
     Active Substance: ZOLEDRONIC ACID

REACTIONS (1)
  - Death [Fatal]

NARRATIVE: CASE EVENT DATE: 20250815
